FAERS Safety Report 16359671 (Version 1)
Quarter: 2019Q2

REPORT INFORMATION
  Report Type: Spontaneous
  Country: US (occurrence: US)
  Receive Date: 20190528
  Receipt Date: 20190528
  Transmission Date: 20190711
  Serious: Yes (Hospitalization)
  Sender: FDA-Public Use
  Company Number: US-HIKMA PHARMACEUTICALS USA INC.-US-H14001-19-03388

PATIENT
  Age: 17 Year
  Sex: Female
  Weight: 52.1 kg

DRUGS (21)
  1. DEXAMETHASONE. [Suspect]
     Active Substance: DEXAMETHASONE
     Dosage: PROPHASE: DAY 3 AND 5
     Route: 048
  2. CYTARABINE. [Suspect]
     Active Substance: CYTARABINE
     Dosage: COURSE A: OVER 1-30 MIN; DAY 4-5;  TOTAL 4 DOSES
     Route: 042
  3. CYCLOPHOSPHAMIDE. [Suspect]
     Active Substance: CYCLOPHOSPHAMIDE
     Indication: ANAPLASTIC LARGE-CELL LYMPHOMA
     Route: 042
  4. CYCLOPHOSPHAMIDE. [Suspect]
     Active Substance: CYCLOPHOSPHAMIDE
     Route: 042
  5. CRIZOTINIB [Suspect]
     Active Substance: CRIZOTINIB
     Dosage: TOTAL DOSE OF THE 7TH COURSE: 3000 MG
     Route: 048
     Dates: end: 20180813
  6. METHOTREXATE. [Suspect]
     Active Substance: METHOTREXATE
     Dosage: COURSE B: OVER 3 HOURS ON DAY 1; CYCLES 2, 4, 6
     Route: 042
  7. CRIZOTINIB [Suspect]
     Active Substance: CRIZOTINIB
     Indication: ANAPLASTIC LARGE-CELL LYMPHOMA
     Dosage: COURSE A: ON DAYS 1-21
     Route: 048
  8. DEXAMETHASONE. [Suspect]
     Active Substance: DEXAMETHASONE
     Indication: ANAPLASTIC LARGE-CELL LYMPHOMA
     Dosage: PROPHASE: DAY 1 AND 2
     Route: 048
  9. METHOTREXATE. [Suspect]
     Active Substance: METHOTREXATE
     Dosage: COURSE A: OVER 3 HOURS ON DAY 1; CYCLES 1, 3, 5
     Route: 042
  10. METHOTREXATE. [Suspect]
     Active Substance: METHOTREXATE
     Dosage: TOTAL DOSE OF THE 7TH COURSE: 4620 MG
     Route: 042
     Dates: end: 20180807
  11. DOXORUBICIN [Suspect]
     Active Substance: DOXORUBICIN
     Indication: ANAPLASTIC LARGE-CELL LYMPHOMA
     Route: 042
  12. METHOTREXATE. [Suspect]
     Active Substance: METHOTREXATE
     Indication: ANAPLASTIC LARGE-CELL LYMPHOMA
     Dosage: 7.5-12 MG ON DAY 1
     Route: 037
  13. CYTARABINE. [Suspect]
     Active Substance: CYTARABINE
     Indication: ANAPLASTIC LARGE-CELL LYMPHOMA
     Dosage: PROPHASE: DOSE OF 15-24 MG; ON DAY 1 (AGE-BASED DOSING)
     Route: 037
  14. DOXORUBICIN [Suspect]
     Active Substance: DOXORUBICIN
     Dosage: TOTAL DOSE OF THE 7TH COURSE: 78 MG
     Route: 042
     Dates: end: 20180811
  15. ETOPOSIDE. [Suspect]
     Active Substance: ETOPOSIDE
     Indication: ANAPLASTIC LARGE-CELL LYMPHOMA
     Route: 042
  16. CYCLOPHOSPHAMIDE. [Suspect]
     Active Substance: CYCLOPHOSPHAMIDE
     Dosage: TOTAL DOSE OF THE 7TH COURSE: 1540 MG
     Route: 042
     Dates: end: 20180811
  17. HYDROCORTISONE. [Suspect]
     Active Substance: HYDROCORTISONE
     Indication: ANAPLASTIC LARGE-CELL LYMPHOMA
     Dosage: DOSE OF 7.5-12 MG ON DAY 1 (AGE-BASED DOSING)
     Route: 037
  18. CRIZOTINIB [Suspect]
     Active Substance: CRIZOTINIB
     Dosage: COURSE B: ON DAYS 1-21
     Route: 048
  19. DEXAMETHASONE. [Suspect]
     Active Substance: DEXAMETHASONE
     Dosage: COURSE A AND B: DAY 1-5
     Route: 048
  20. IFOSFAMIDE. [Suspect]
     Active Substance: IFOSFAMIDE
     Indication: ANAPLASTIC LARGE-CELL LYMPHOMA
     Route: 042
  21. DEXAMETHASONE. [Suspect]
     Active Substance: DEXAMETHASONE
     Dosage: TOTAL DOSE OF THE 7TH COURSE: 77.5 MG
     Route: 048
     Dates: end: 20180811

REACTIONS (5)
  - Diarrhoea [Recovering/Resolving]
  - Dehydration [Recovering/Resolving]
  - Urine output decreased [Recovering/Resolving]
  - Dizziness [Recovering/Resolving]
  - Vomiting [Recovering/Resolving]

NARRATIVE: CASE EVENT DATE: 20180814
